FAERS Safety Report 17110904 (Version 2)
Quarter: 2019Q4

REPORT INFORMATION
  Report Type: Report from Study
  Country: PK (occurrence: PK)
  Receive Date: 20191204
  Receipt Date: 20191212
  Transmission Date: 20200122
  Serious: Yes (Other)
  Sender: FDA-Public Use
  Company Number: NVSC2019PK057950

PATIENT
  Age: 39 Year
  Sex: Female
  Weight: 59 kg

DRUGS (3)
  1. TASIGNA [Suspect]
     Active Substance: NILOTINIB
     Indication: CHRONIC MYELOID LEUKAEMIA
     Dosage: 600 MG (4 CAPSULES PER DAY 2+0+2)
     Route: 048
     Dates: start: 20171017
  2. TASIGNA [Suspect]
     Active Substance: NILOTINIB
     Dosage: 600 MG (4 CAPSULES PER DAY 2+0+2)
     Route: 048
  3. TASIGNA [Suspect]
     Active Substance: NILOTINIB
     Dosage: 400 MG (2 CAPS PER DAY)
     Route: 048

REACTIONS (4)
  - Fatigue [Unknown]
  - Hepatocellular injury [Recovered/Resolved]
  - Abdominal discomfort [Recovered/Resolved]
  - Nausea [Unknown]

NARRATIVE: CASE EVENT DATE: 20190831
